FAERS Safety Report 6685398-6 (Version None)
Quarter: 2010Q2

REPORT INFORMATION
  Report Type: 
  Country: None (occurrence: None)
  Receive Date: 20100416
  Receipt Date: 20100204
  Transmission Date: 20101027
  Serious: No
  Sender: FDA-Public Use
  Company Number: US-AMGEN-KDL390683

PATIENT
  Sex: Male

DRUGS (3)
  1. SENSIPAR [Suspect]
     Indication: HYPERPARATHYROIDISM SECONDARY
     Dates: start: 20071101
  2. ZEMPLAR [Concomitant]
     Route: 042
  3. METOPROLOL TARTRATE [Concomitant]
     Dates: start: 20090923

REACTIONS (2)
  - BLOOD PARATHYROID HORMONE DECREASED [None]
  - DRUG INTERACTION [None]
